FAERS Safety Report 4589712-7 (Version None)
Quarter: 2005Q1

REPORT INFORMATION
  Report Type: 
  Country: None (occurrence: None)
  Receive Date: 20050217
  Receipt Date: 20050204
  Transmission Date: 20050727
  Serious: Yes (Hospitalization)
  Sender: FDA-Public Use
  Company Number: 2004-116347-NL

PATIENT
  Age: 32 Year
  Sex: Female

DRUGS (2)
  1. GANIRELIX [Suspect]
     Indication: IN VITRO FERTILISATION
     Dosage: 0.25 MG SUBCUTANEOUS
     Route: 058
     Dates: start: 20040518, end: 20040523
  2. FOLLITROPIN ALFA [Concomitant]

REACTIONS (1)
  - HEPATIC ENZYME INCREASED [None]
